FAERS Safety Report 8109932-4 (Version None)
Quarter: 2012Q1

REPORT INFORMATION
  Report Type: 
  Country: None (occurrence: None)
  Receive Date: 20120202
  Receipt Date: 20120123
  Transmission Date: 20120608
  Serious: Yes (Life-Threatening, Hospitalization, Other)
  Sender: FDA-Public Use
  Company Number: DE-PFIZER INC-2012024287

PATIENT
  Age: 81 Year
  Sex: Female
  Weight: 49 kg

DRUGS (4)
  1. PANTOPRAZOLE [Suspect]
     Dosage: 20 MG, DAILY
     Route: 048
     Dates: start: 20110715, end: 20110930
  2. CARBIMAZOL [Suspect]
     Dosage: 10 MG, 2X/DAY (5 MG, TABLETS, 2 DOSAGE FORMS, 2 IN 1 D)
     Route: 048
     Dates: start: 20110921, end: 20110927
  3. PANTOPRAZOLE [Suspect]
     Dosage: 40 MG, DAILY
     Route: 048
     Dates: start: 20110709, end: 20110714
  4. METOPROLOL TARTRATE AND HYDROCHLOROTHIAZIDE [Concomitant]
     Dosage: 47.5 MG, 1X/DAY (SUSTAINED-RELEASE TABLET)
     Route: 048
     Dates: start: 20110921

REACTIONS (1)
  - RENAL FAILURE ACUTE [None]
